FAERS Safety Report 21341684 (Version 1)
Quarter: 2022Q3

REPORT INFORMATION
  Report Type: Spontaneous
  Country: US (occurrence: None)
  Receive Date: 20220915
  Receipt Date: 20220915
  Transmission Date: 20221027
  Serious: Yes (Life-Threatening, Hospitalization, Disabling, Other)
  Sender: FDA-Public Use
  Company Number: None

PATIENT
  Age: 64 Year
  Sex: Female
  Weight: 60.75 kg

DRUGS (20)
  1. PROLIA [Suspect]
     Active Substance: DENOSUMAB
     Indication: Osteoporosis
     Dates: start: 20190901, end: 20190901
  2. LOPRESSOR [Concomitant]
     Active Substance: METOPROLOL TARTRATE
  3. SYNTHROID [Concomitant]
     Active Substance: LEVOTHYROXINE SODIUM
  4. PAXIL [Concomitant]
     Active Substance: PAROXETINE HYDROCHLORIDE
  5. LIDOCAINE [Concomitant]
     Active Substance: LIDOCAINE
  6. MOTRIN [Concomitant]
     Active Substance: IBUPROFEN
  7. TYLENOL [Concomitant]
     Active Substance: ACETAMINOPHEN
  8. ATORVASTATIN [Concomitant]
     Active Substance: ATORVASTATIN
  9. ACYCLOVIR [Concomitant]
     Active Substance: ACYCLOVIR
  10. ASPIRIN [Concomitant]
     Active Substance: ASPIRIN
  11. NITROGLYCERIN [Concomitant]
     Active Substance: NITROGLYCERIN
  12. Voltarin [Concomitant]
  13. GABAPENTIN [Concomitant]
     Active Substance: GABAPENTIN
  14. CLINDAMYCIN [Concomitant]
     Active Substance: CLINDAMYCIN
  15. Clorhexadine [Concomitant]
  16. VITAMIN B [Concomitant]
     Active Substance: VITAMIN B
  17. MAGNESIUM [Concomitant]
     Active Substance: MAGNESIUM
  18. VITAMINS [Concomitant]
     Active Substance: VITAMINS
  19. METAMUCIL [Concomitant]
     Active Substance: PLANTAGO SEED
  20. ASPIRIN [Concomitant]
     Active Substance: ASPIRIN

REACTIONS (7)
  - Stevens-Johnson syndrome [None]
  - Submandibular abscess [None]
  - Osteomyelitis [None]
  - Myocardial infarction [None]
  - Tooth loss [None]
  - Post-traumatic stress disorder [None]
  - Impaired quality of life [None]

NARRATIVE: CASE EVENT DATE: 20200120
